FAERS Safety Report 17245677 (Version 1)
Quarter: 2020Q1

REPORT INFORMATION
  Report Type: Spontaneous
  Country: IE (occurrence: IE)
  Receive Date: 20200108
  Receipt Date: 20200108
  Transmission Date: 20200409
  Serious: Yes (Disabling)
  Sender: FDA-Public Use
  Company Number: IE-TEVA-2020-IE-1164448

PATIENT
  Age: 66 Year
  Sex: Female

DRUGS (4)
  1. ATORVASTATIN (GENERIC) [Concomitant]
     Active Substance: ATORVASTATIN
     Indication: HYPERLIPIDAEMIA
     Dosage: 20 MILLIGRAM DAILY; PO TONIGHT
     Route: 048
     Dates: start: 201210
  2. LEVOTHYROXINE SODIUM (G) [Concomitant]
     Indication: HYPOTHYROIDISM
     Dosage: 50 MCG 3/7, 100 MCG 4/7
     Route: 048
     Dates: start: 200002
  3. AMLODIPINE (GENERIC) [Concomitant]
     Indication: HYPERTENSION
     Dosage: 5 MILLIGRAM
     Route: 048
     Dates: start: 201907
  4. PREGABALIN (G) [Suspect]
     Active Substance: PREGABALIN
     Indication: PAIN IN EXTREMITY
     Dosage: 25 MILLIGRAM DAILY; PO TONIGHT
     Route: 048
     Dates: start: 20190611

REACTIONS (4)
  - Nightmare [Recovered/Resolved]
  - Affective disorder [Recovered/Resolved]
  - Self-injurious ideation [Recovered/Resolved]
  - Depression [Recovered/Resolved]
